FAERS Safety Report 5118565-3 (Version None)
Quarter: 2006Q3

REPORT INFORMATION
  Report Type: 
  Country: None (occurrence: None)
  Receive Date: 20060927
  Receipt Date: 20060918
  Transmission Date: 20061208
  Serious: Yes (Hospitalization)
  Sender: FDA-Public Use
  Company Number: 2006096485

PATIENT
  Sex: Male

DRUGS (1)
  1. ACCUPRIL [Suspect]
     Dosage: ORAL
     Route: 048

REACTIONS (1)
  - GASTROINTESTINAL TUBE INSERTION [None]
